FAERS Safety Report 4355622-3 (Version None)
Quarter: 2004Q2

REPORT INFORMATION
  Report Type: 
  Country: None (occurrence: None)
  Receive Date: 20040505
  Receipt Date: 20040426
  Transmission Date: 20050107
  Serious: No
  Sender: FDA-Public Use
  Company Number: 2004GB01032

PATIENT
  Sex: Male

DRUGS (6)
  1. CRESTOR [Suspect]
     Indication: HYPERLIPIDAEMIA
     Dosage: 40 MG DAILY PO
     Route: 048
     Dates: start: 20030926, end: 20040320
  2. CIPRAMIL [Concomitant]
  3. MODURET [Concomitant]
  4. ATACAND [Concomitant]
  5. NU-SEALS [Concomitant]
  6. METOPROLOL ^STADA^ [Concomitant]

REACTIONS (3)
  - ANOREXIA [None]
  - OEDEMA PERIPHERAL [None]
  - SOMNOLENCE [None]
